FAERS Safety Report 9416679 (Version 2)
Quarter: 2013Q3

REPORT INFORMATION
  Report Type: Spontaneous
  Country: GB (occurrence: None)
  Receive Date: 20130726
  Receipt Date: 20130726
  Transmission Date: 20140515
  Serious: Yes (Hospitalization)
  Sender: FDA-Public Use
  Company Number: 2013GB0282

PATIENT
  Age: 16 Year
  Sex: Male

DRUGS (3)
  1. NITISINONE [Suspect]
     Indication: TYROSINAEMIA
     Dosage: 80 MG (40 MG, 2 IN 1 D), ORAL
     Route: 048
  2. OMEPRAZOLE [Concomitant]
  3. COLECALCIFEROL [Concomitant]

REACTIONS (11)
  - Abdominal pain [None]
  - Decreased appetite [None]
  - Amino acid level increased [None]
  - Vomiting [None]
  - Abdominal pain [None]
  - Constipation [None]
  - Gastrointestinal pain [None]
  - Abdominal rigidity [None]
  - Nervous system disorder [None]
  - Gastritis [None]
  - Disease progression [None]
